FAERS Safety Report 8144639-9 (Version None)
Quarter: 2012Q1

REPORT INFORMATION
  Report Type: 
  Country: None (occurrence: None)
  Receive Date: 20120217
  Receipt Date: 20120201
  Transmission Date: 20120608
  Serious: Yes (Hospitalization)
  Sender: FDA-Public Use
  Company Number: DE-ROCHE-1035608

PATIENT
  Sex: Male
  Weight: 59.5 kg

DRUGS (12)
  1. PREDNISONE [Suspect]
     Dosage: 1-0-0
     Dates: start: 20090826
  2. BASILIXIMAB [Suspect]
     Indication: RENAL TRANSPLANT
     Dosage: DATE OF LAST DOSE PRIOR TO SAE: 02JUN2009
     Route: 042
     Dates: start: 20090529
  3. PREDNISONE [Suspect]
     Dates: start: 20090627, end: 20090627
  4. PREDNISONE [Suspect]
     Dates: start: 20090624, end: 20090626
  5. PREDNISONE [Suspect]
     Dates: end: 20090825
  6. MYCOPHENOLATE MOFETIL (CELLCEPT) [Suspect]
     Indication: RENAL TRANSPLANT
     Dosage: FREQUENCY 2 (1-0-1)
     Route: 048
     Dates: start: 20090529
  7. TACROLIMUS [Suspect]
     Indication: RENAL TRANSPLANT
     Route: 048
     Dates: start: 20090629
  8. TACROLIMUS [Suspect]
     Dosage: 1-0-0
     Dates: start: 20090529, end: 20090621
  9. TACROLIMUS [Suspect]
     Dosage: 1-0-0
  10. PREDNISONE [Suspect]
     Indication: RENAL TRANSPLANT
     Dosage: FLUID AND FREQUENCY 1
     Route: 042
  11. PREDNISONE [Suspect]
     Dosage: 1-0-0
     Dates: start: 20090529, end: 20090721
  12. TACROLIMUS [Suspect]
     Dates: start: 20090626, end: 20090628

REACTIONS (4)
  - UROSEPSIS [None]
  - HYDRONEPHROSIS [None]
  - GLOMERULONEPHRITIS [None]
  - NEPHROSCLEROSIS [None]
